FAERS Safety Report 5802618-8 (Version None)
Quarter: 2008Q3

REPORT INFORMATION
  Report Type: 
  Country: None (occurrence: None)
  Receive Date: 20080708
  Receipt Date: 20080701
  Transmission Date: 20090109
  Serious: Yes (Death)
  Sender: FDA-Public Use
  Company Number: JP-BRISTOL-MYERS SQUIBB COMPANY-14248975

PATIENT

DRUGS (1)
  1. VEPESID [Suspect]
     Indication: MALIGNANT SOFT TISSUE NEOPLASM
     Route: 041

REACTIONS (1)
  - MYELODYSPLASTIC SYNDROME [None]
